FAERS Safety Report 23132017 (Version 1)
Quarter: 2023Q4

REPORT INFORMATION
  Report Type: Spontaneous
  Country: PL (occurrence: PL)
  Receive Date: 20231101
  Receipt Date: 20231101
  Transmission Date: 20240109
  Serious: Yes (Other)
  Sender: FDA-Public Use
  Company Number: None

PATIENT
  Age: 70 Year
  Sex: Female
  Weight: 40 kg

DRUGS (4)
  1. ARAVA [Suspect]
     Active Substance: LEFLUNOMIDE
     Indication: Rheumatoid arthritis
     Dosage: 20 MG, QOD
     Route: 048
     Dates: start: 20050302, end: 20050518
  2. METHYLPREDNISOLONE [Concomitant]
     Active Substance: METHYLPREDNISOLONE
     Indication: Rheumatoid arthritis
     Dosage: 4 MG
     Route: 048
     Dates: start: 20040405
  3. RANIGAST [Concomitant]
     Dosage: 50 UNITS
     Route: 048
  4. OSTOLEK [Concomitant]
     Indication: Osteoporosis
     Dosage: 70 MG, QW
     Dates: start: 20050302

REACTIONS (3)
  - Leukopenia [Recovered/Resolved]
  - Urticaria [Recovered/Resolved]
  - Anaemia [Recovered/Resolved]

NARRATIVE: CASE EVENT DATE: 20050501
